FAERS Safety Report 24406100 (Version 4)
Quarter: 2025Q1

REPORT INFORMATION
  Report Type: Spontaneous
  Country: CA (occurrence: CA)
  Receive Date: 20241007
  Receipt Date: 20250306
  Transmission Date: 20250409
  Serious: Yes (Other)
  Sender: CELLTRION
  Company Number: CA-PFIZER INC-202400260667

PATIENT

DRUGS (10)
  1. INFLECTRA [Suspect]
     Active Substance: INFLIXIMAB-DYYB
     Indication: Crohn^s disease
     Route: 042
     Dates: start: 20240910
  2. INFLECTRA [Suspect]
     Active Substance: INFLIXIMAB-DYYB
     Route: 042
     Dates: start: 20240926
  3. INFLECTRA [Suspect]
     Active Substance: INFLIXIMAB-DYYB
     Route: 042
     Dates: start: 20241024
  4. INFLECTRA [Suspect]
     Active Substance: INFLIXIMAB-DYYB
     Route: 042
     Dates: start: 20241219
  5. INFLECTRA [Suspect]
     Active Substance: INFLIXIMAB-DYYB
     Route: 042
     Dates: start: 20250225
  6. PREDNISONE [Concomitant]
     Active Substance: PREDNISONE
  7. VITAMIN B [Concomitant]
     Active Substance: VITAMIN B
  8. VITAMIN C [Concomitant]
     Active Substance: ASCORBIC ACID
  9. VITAMIN D [Concomitant]
     Active Substance: VITAMIN D NOS
  10. ZINC [Concomitant]
     Active Substance: ZINC

REACTIONS (14)
  - Pyoderma gangrenosum [Recovered/Resolved]
  - Therapeutic response shortened [Unknown]
  - Feeling hot [Recovering/Resolving]
  - Hyperhidrosis [Recovering/Resolving]
  - Headache [Recovering/Resolving]
  - Nasopharyngitis [Recovering/Resolving]
  - Arthralgia [Recovered/Resolved]
  - Aphthous ulcer [Recovered/Resolved]
  - Periorbital swelling [Recovered/Resolved]
  - Rash [Recovered/Resolved]
  - Defaecation urgency [Not Recovered/Not Resolved]
  - Erythema nodosum [Unknown]
  - Off label use [Unknown]
  - Inappropriate schedule of product administration [Unknown]

NARRATIVE: CASE EVENT DATE: 20240901
